FAERS Safety Report 7525427-0 (Version None)
Quarter: 2011Q2

REPORT INFORMATION
  Report Type: 
  Country: None (occurrence: None)
  Receive Date: 20110606
  Receipt Date: 20110527
  Transmission Date: 20111010
  Serious: Yes (Hospitalization)
  Sender: FDA-Public Use
  Company Number: US-ACTELION-A-US2011-49620

PATIENT

DRUGS (2)
  1. REVATIO [Concomitant]
  2. TRACLEER [Suspect]
     Indication: PULMONARY ARTERIAL HYPERTENSION
     Dosage: UNK
     Route: 048
     Dates: start: 20060101

REACTIONS (5)
  - BLOOD ELECTROLYTES ABNORMAL [None]
  - CONSTIPATION [None]
  - FLUID RETENTION [None]
  - WEIGHT INCREASED [None]
  - BLOOD POTASSIUM DECREASED [None]
